FAERS Safety Report 12543861 (Version 1)
Quarter: 2016Q3

REPORT INFORMATION
  Report Type: Spontaneous
  Country: US (occurrence: None)
  Receive Date: 20160708
  Receipt Date: 20160708
  Transmission Date: 20161109
  Serious: No
  Sender: FDA-Public Use
  Company Number: None

PATIENT
  Sex: Female

DRUGS (1)
  1. TYLENOL [Suspect]
     Active Substance: ACETAMINOPHEN

REACTIONS (6)
  - Legal problem [None]
  - Intentional overdose [None]
  - Blood glucose increased [None]
  - Head injury [None]
  - Drug dose omission [None]
  - Memory impairment [None]
